FAERS Safety Report 6689919-9 (Version None)
Quarter: 2010Q2

REPORT INFORMATION
  Report Type: 
  Country: None (occurrence: None)
  Receive Date: 20100421
  Receipt Date: 20100412
  Transmission Date: 20101027
  Serious: Yes (Other)
  Sender: FDA-Public Use
  Company Number: US-BAXTER-2010BH009748

PATIENT
  Age: 47 Year
  Sex: Male

DRUGS (6)
  1. FAMOTIDINE [Suspect]
     Indication: DRUG USE FOR UNKNOWN INDICATION
     Route: 065
  2. MORPHINE [Concomitant]
     Indication: DRUG USE FOR UNKNOWN INDICATION
     Route: 065
  3. CEFOXITIN [Concomitant]
     Indication: DRUG USE FOR UNKNOWN INDICATION
     Route: 065
  4. FENTANYL [Concomitant]
     Indication: GENERAL ANAESTHESIA
     Route: 065
  5. PROPOFOL [Concomitant]
     Indication: GENERAL ANAESTHESIA
     Route: 065
  6. VECURONIUM BROMIDE [Concomitant]
     Indication: GENERAL ANAESTHESIA
     Route: 065

REACTIONS (2)
  - HEPATITIS ACUTE [None]
  - RENAL FAILURE ACUTE [None]
